FAERS Safety Report 10694797 (Version 1)
Quarter: 2015Q1

REPORT INFORMATION
  Report Type: Spontaneous
  Country: US (occurrence: US)
  Receive Date: 20150107
  Receipt Date: 20150107
  Transmission Date: 20150721
  Serious: No
  Sender: FDA-Public Use
  Company Number: US-ASTRAZENECA-2014SE93142

PATIENT
  Sex: Male
  Weight: 68 kg

DRUGS (1)
  1. SEROQUEL XR [Suspect]
     Active Substance: QUETIAPINE FUMARATE
     Indication: BIPOLAR DISORDER
     Dosage: 50 MGS IN THE MORNING AND SREOQUEL XR 400 MGS AT NIGHT.
     Route: 048
     Dates: start: 201407

REACTIONS (4)
  - Intentional product misuse [Unknown]
  - Therapeutic response unexpected [Unknown]
  - Drug dose omission [Unknown]
  - Insomnia [Unknown]
